FAERS Safety Report 8156182-1 (Version None)
Quarter: 2012Q1

REPORT INFORMATION
  Report Type: 
  Country: None (occurrence: None)
  Receive Date: 20120222
  Receipt Date: 20120214
  Transmission Date: 20120608
  Serious: Yes (Hospitalization, Other)
  Sender: FDA-Public Use
  Company Number: US-SANOFI-AVENTIS-2011SA084373

PATIENT
  Age: 59 Year
  Sex: Female

DRUGS (6)
  1. METOCLOPRAMIDE [Concomitant]
  2. PREVACID [Concomitant]
  3. MULTI-VITAMINS [Concomitant]
  4. SANDOSTATIN LAR [Concomitant]
  5. ESTRADIOL [Concomitant]
  6. FERRLECIT [Suspect]
     Route: 042
     Dates: start: 20111220, end: 20111220

REACTIONS (6)
  - BACK PAIN [None]
  - DYSPNOEA [None]
  - NAUSEA [None]
  - TOXICITY TO VARIOUS AGENTS [None]
  - INFLUENZA LIKE ILLNESS [None]
  - ABDOMINAL PAIN [None]
